FAERS Safety Report 13352696 (Version 1)
Quarter: 2017Q1

REPORT INFORMATION
  Report Type: Spontaneous
  Country: FR (occurrence: FR)
  Receive Date: 20170320
  Receipt Date: 20170320
  Transmission Date: 20170429
  Serious: Yes (Other)
  Sender: FDA-Public Use
  Company Number: FR-ABBVIE-17P-056-1913890-00

PATIENT
  Sex: Female

DRUGS (1)
  1. DEPAKINE [Suspect]
     Active Substance: VALPROATE SODIUM
     Indication: MATERNAL EXPOSURE TIMING UNSPECIFIED
     Route: 064

REACTIONS (6)
  - Speech disorder [Not Recovered/Not Resolved]
  - Psychomotor hyperactivity [Not Recovered/Not Resolved]
  - Foetal exposure during pregnancy [Unknown]
  - Foetal anticonvulsant syndrome [Not Recovered/Not Resolved]
  - Speech disorder developmental [Not Recovered/Not Resolved]
  - Auditory disorder [Not Recovered/Not Resolved]
